FAERS Safety Report 9622076 (Version 1)
Quarter: 2013Q4

REPORT INFORMATION
  Report Type: Spontaneous
  Country: US (occurrence: US)
  Receive Date: 20131015
  Receipt Date: 20131015
  Transmission Date: 20140711
  Serious: No
  Sender: FDA-Public Use
  Company Number: US-PFIZER INC-2013293110

PATIENT
  Age: 45 Year
  Sex: Female
  Weight: 79.4 kg

DRUGS (11)
  1. XANAX [Suspect]
     Indication: NERVOUS SYSTEM DISORDER
     Dosage: UNK
  2. NEURONTIN [Suspect]
     Indication: NERVOUS SYSTEM DISORDER
     Dosage: UNK
  3. NEURONTIN [Suspect]
     Indication: BURNING SENSATION
     Dosage: UNK
     Dates: start: 2013, end: 2013
  4. NEURONTIN [Suspect]
     Indication: PARAESTHESIA
     Dosage: 400 MG, UNK
     Dates: start: 2013, end: 2013
  5. NEURONTIN [Suspect]
     Dosage: UNK
     Dates: start: 2013, end: 2013
  6. LYRICA [Suspect]
     Indication: BURNING SENSATION
     Dosage: 75 MG, 2X/DAY
     Dates: start: 20130910, end: 2013
  7. LYRICA [Suspect]
     Indication: PARAESTHESIA
  8. BUPROPION [Suspect]
     Indication: DEPRESSION
     Dosage: 150 MG, 1X/DAY
     Route: 048
     Dates: start: 20131002, end: 20131008
  9. BUPROPION [Suspect]
     Dosage: 300 MG, 1X/DAY
     Dates: start: 20131009
  10. PREVACID [Concomitant]
     Indication: GASTROOESOPHAGEAL REFLUX DISEASE
     Dosage: 40 MG, UNK
  11. SYNTHROID [Concomitant]
     Indication: THYROID DISORDER
     Dosage: UNK

REACTIONS (4)
  - Off label use [Unknown]
  - Drug ineffective [Unknown]
  - Pain [Unknown]
  - Tremor [Unknown]
